FAERS Safety Report 5098669-4 (Version None)
Quarter: 2006Q3

REPORT INFORMATION
  Report Type: 
  Country: None (occurrence: None)
  Receive Date: 20060907
  Receipt Date: 20060724
  Transmission Date: 20061208
  Serious: Yes (Other)
  Sender: FDA-Public Use
  Company Number: PHBS2006NL10972

PATIENT
  Age: 37 Year
  Sex: Male

DRUGS (4)
  1. LOPRESOR OROS [Suspect]
     Indication: HYPERTENSION
     Dosage: 100 MG, QD
     Dates: start: 20060414
  2. CARDURA [Suspect]
     Dosage: 8 MG, QD
     Dates: start: 20060609
  3. COVERSYL [Concomitant]
     Dosage: 4 MG, QD
     Dates: start: 20060131
  4. SPIRONOLACTONE [Concomitant]
     Dosage: 25 MG, BID

REACTIONS (1)
  - AMNESIA [None]
